FAERS Safety Report 9288196 (Version 2)
Quarter: 2013Q2

REPORT INFORMATION
  Report Type: Spontaneous
  Country: US (occurrence: US)
  Receive Date: 20130513
  Receipt Date: 20130513
  Transmission Date: 20140414
  Serious: Yes (Other)
  Sender: FDA-Public Use
  Company Number: US-RB-053884-13

PATIENT
  Age: 5 Year
  Sex: Female

DRUGS (1)
  1. DELSYM CHILD GRAPE [Suspect]
     Indication: PRODUCT USED FOR UNKNOWN INDICATION
     Dosage: TWO 5ML DOSES AND ONE 2.5ML DOSE
     Route: 048
     Dates: start: 20130419

REACTIONS (4)
  - Hallucination [Recovered/Resolved]
  - Somnolence [Recovered/Resolved]
  - Vision blurred [Recovered/Resolved]
  - Overdose [Recovered/Resolved]
